FAERS Safety Report 22020151 (Version 1)
Quarter: 2023Q1

REPORT INFORMATION
  Report Type: Spontaneous
  Country: US (occurrence: US)
  Receive Date: 20230222
  Receipt Date: 20230222
  Transmission Date: 20230417
  Serious: No
  Sender: FDA-Public Use
  Company Number: US-BRISTOL-MYERS SQUIBB COMPANY-2023-025449

PATIENT
  Age: 75 Year
  Sex: Female
  Weight: 132.0 kg

DRUGS (1)
  1. REVLIMID [Suspect]
     Active Substance: LENALIDOMIDE
     Indication: Myelodysplastic syndrome
     Route: 048
     Dates: start: 20230118, end: 20230201

REACTIONS (4)
  - Gout [Unknown]
  - Illness [Unknown]
  - Gait disturbance [Unknown]
  - Joint stiffness [Unknown]

NARRATIVE: CASE EVENT DATE: 20230120
